FAERS Safety Report 13389642 (Version 1)
Quarter: 2017Q1

REPORT INFORMATION
  Report Type: Spontaneous
  Country: PR (occurrence: PR)
  Receive Date: 20170331
  Receipt Date: 20170331
  Transmission Date: 20170429
  Serious: No
  Sender: FDA-Public Use
  Company Number: PR-VIFOR (INTERNATIONAL) INC.-VIT-2017-02800

PATIENT
  Age: 23 Year
  Sex: Female
  Weight: 56.81 kg

DRUGS (1)
  1. MIRCERA [Suspect]
     Active Substance: METHOXY POLYETHYLENE GLYCOL-EPOETIN BETA
     Indication: PRODUCT USED FOR UNKNOWN INDICATION
     Dosage: FIRST TIME
     Dates: start: 20170214

REACTIONS (5)
  - Anxiety [Unknown]
  - Heart rate irregular [Unknown]
  - Tachycardia [Unknown]
  - Dyspnoea [Unknown]
  - Flushing [Unknown]

NARRATIVE: CASE EVENT DATE: 20170214
